FAERS Safety Report 19064105 (Version 2)
Quarter: 2021Q2

REPORT INFORMATION
  Report Type: Spontaneous
  Country: BE (occurrence: BE)
  Receive Date: 20210326
  Receipt Date: 20210503
  Transmission Date: 20210717
  Serious: Yes (Death)
  Sender: FDA-Public Use
  Company Number: BE-BAYER-2021-112415

PATIENT
  Sex: Male

DRUGS (2)
  1. XOFIGO [Suspect]
     Active Substance: RADIUM RA-223 DICHLORIDE
     Indication: ANALGESIC THERAPY
  2. XOFIGO [Suspect]
     Active Substance: RADIUM RA-223 DICHLORIDE
     Indication: ANALGESIC THERAPY
     Dosage: UNK

REACTIONS (4)
  - Product use in unapproved indication [None]
  - Disease progression [Fatal]
  - Adverse event [Fatal]
  - Off label use [None]
